FAERS Safety Report 23616767 (Version 1)
Quarter: 2024Q1

REPORT INFORMATION
  Report Type: Report from Study
  Country: US (occurrence: None)
  Receive Date: 20240311
  Receipt Date: 20240311
  Transmission Date: 20240410
  Serious: Yes (Life-Threatening, Other)
  Sender: FDA-Public Use
  Company Number: 2024A056980

PATIENT
  Sex: Female
  Weight: 89.4 kg

DRUGS (1)
  1. TEZSPIRE [Suspect]
     Active Substance: TEZEPELUMAB-EKKO
     Route: 058

REACTIONS (10)
  - Acute respiratory failure [Unknown]
  - Pleural effusion [Unknown]
  - Pleurisy [Unknown]
  - Carcinoid tumour pulmonary [Unknown]
  - Pneumonia [Unknown]
  - Asthma [Unknown]
  - Pleuritic pain [Unknown]
  - Cough [Not Recovered/Not Resolved]
  - Hypertension [Unknown]
  - Dyspnoea [Unknown]
